FAERS Safety Report 14999188 (Version 1)
Quarter: 2018Q2

REPORT INFORMATION
  Report Type: Report from Study
  Country: None (occurrence: US)
  Receive Date: 20180612
  Receipt Date: 20180612
  Transmission Date: 20180711
  Serious: Yes (Other)
  Sender: FDA-Public Use
  Company Number: US-ABBVIE-17K-163-1965329-00

PATIENT
  Age: 69 Year
  Sex: Female

DRUGS (10)
  1. HUMIRA [Suspect]
     Active Substance: ADALIMUMAB
     Indication: COLITIS ULCERATIVE
     Route: 058
     Dates: start: 201510, end: 201512
  2. EMLA [Concomitant]
     Active Substance: LIDOCAINE\PRILOCAINE
     Indication: PRODUCT USED FOR UNKNOWN INDICATION
  3. RESTASIS [Concomitant]
     Active Substance: CYCLOSPORINE
     Indication: DRY EYE
  4. CITRICAL D [Concomitant]
     Indication: SUPPLEMENTATION THERAPY
  5. TRAMADOL. [Concomitant]
     Active Substance: TRAMADOL
     Indication: PRODUCT USED FOR UNKNOWN INDICATION
  6. ZOLPIMIST [Concomitant]
     Active Substance: ZOLPIDEM TARTRATE
     Indication: POLLAKIURIA
  7. HUMIRA [Suspect]
     Active Substance: ADALIMUMAB
     Route: 058
     Dates: start: 201601
  8. LEVOTHYROXINE. [Concomitant]
     Active Substance: LEVOTHYROXINE
     Indication: HYPOTHYROIDISM
  9. MYRBETRIQ [Concomitant]
     Active Substance: MIRABEGRON
     Indication: POLLAKIURIA
  10. PRAVASTATIN. [Concomitant]
     Active Substance: PRAVASTATIN
     Indication: BLOOD CHOLESTEROL INCREASED

REACTIONS (9)
  - Spinal operation [Recovered/Resolved]
  - Hypoaesthesia [Not Recovered/Not Resolved]
  - Spinal column stenosis [Recovered/Resolved]
  - Spondylitis [Not Recovered/Not Resolved]
  - Gait disturbance [Not Recovered/Not Resolved]
  - Cataract [Recovered/Resolved]
  - Bladder operation [Recovered/Resolved]
  - Incisional hernia [Recovered/Resolved]
  - Surgery [Recovered/Resolved]

NARRATIVE: CASE EVENT DATE: 201610
